FAERS Safety Report 6170404-8 (Version None)
Quarter: 2009Q2

REPORT INFORMATION
  Report Type: 
  Country: None (occurrence: None)
  Receive Date: 20090427
  Receipt Date: 20090427
  Transmission Date: 20091009
  Serious: Yes (Life-Threatening)
  Sender: FDA-Public Use
  Company Number: None

PATIENT
  Age: 73 Year
  Sex: Male
  Weight: 79 kg

DRUGS (6)
  1. HEPARIN [Suspect]
     Indication: DEEP VEIN THROMBOSIS
     Dosage: 1200 UNITS/HR IV
     Route: 042
     Dates: start: 20081213, end: 20081215
  2. CASPOFUNGIN [Concomitant]
  3. VANCOMYCIN HCL [Concomitant]
  4. VORICONAZOLE [Concomitant]
  5. HYDROCORTISONE [Concomitant]
  6. ESCITALOPRAM [Concomitant]

REACTIONS (3)
  - ACTIVATED PARTIAL THROMBOPLASTIN TIME PROLONGED [None]
  - HAEMOGLOBIN DECREASED [None]
  - RECTAL HAEMORRHAGE [None]
